FAERS Safety Report 8067780-8 (Version None)
Quarter: 2012Q1

REPORT INFORMATION
  Report Type: 
  Country: None (occurrence: None)
  Receive Date: 20120124
  Receipt Date: 20120120
  Transmission Date: 20120608
  Serious: Yes (Hospitalization)
  Sender: FDA-Public Use
  Company Number: DE-PFIZER INC-2009192338

PATIENT
  Age: 87 Year
  Sex: Female
  Weight: 84 kg

DRUGS (12)
  1. HYDROCHLOROTHIAZIDE [Suspect]
     Dosage: 25 MG, 1X/DAY
     Route: 048
     Dates: start: 20051201
  2. ESCITALOPRAM [Concomitant]
     Indication: DEPRESSION
     Dosage: 10 MG, 1X/DAY
     Route: 048
  3. METOPROLOL [Suspect]
     Indication: HYPERTENSION
     Dosage: 95 MG, 2X/DAY
     Route: 048
     Dates: start: 20051201
  4. CLOPIDOGREL BISULFATE [Concomitant]
     Indication: AORTIC STENOSIS
     Dosage: 75 MG, 1X/DAY
     Dates: start: 20051201
  5. NEXIUM [Concomitant]
     Indication: PROPHYLAXIS AGAINST GASTROINTESTINAL ULCER
     Dosage: 20 MG, 1X/DAY
     Route: 048
     Dates: start: 20051201
  6. AMLODIPINE [Suspect]
     Indication: HYPERTENSION
     Dosage: 2.5 MG, 1X/DAY
     Route: 048
     Dates: start: 20080801
  7. ALLOPURINOL [Concomitant]
     Indication: HYPERURICAEMIA
     Dosage: 100 MG, 1X/DAY
     Route: 048
  8. SIMVASTATIN [Concomitant]
     Indication: HYPERLIPIDAEMIA
     Dosage: 40 MG, 1X/DAY
     Route: 048
     Dates: start: 20051201
  9. RAMIPRIL [Suspect]
     Dosage: 5 MG, 1X/DAY
     Dates: start: 20051201
  10. LEVOTHYROXINE SODIUM [Concomitant]
     Indication: HYPOTHYROIDISM
     Dosage: 75 UG, 1X/DAY
     Route: 048
  11. SPASMEX [Concomitant]
     Indication: URGE INCONTINENCE
     Dosage: 2.5 UNK, 1X/DAY
     Route: 048
  12. SOLIFENACIN SUCCINATE [Concomitant]
     Indication: URGE INCONTINENCE
     Dosage: 10 UNK, 2X/DAY
     Route: 048

REACTIONS (6)
  - MUSCULAR WEAKNESS [None]
  - CEREBROVASCULAR ACCIDENT [None]
  - PRESYNCOPE [None]
  - BRADYCARDIA [None]
  - SINUS BRADYCARDIA [None]
  - SYNCOPE [None]
